FAERS Safety Report 7688167-3 (Version None)
Quarter: 2011Q3

REPORT INFORMATION
  Report Type: 
  Country: None (occurrence: None)
  Receive Date: 20110817
  Receipt Date: 20110801
  Transmission Date: 20111222
  Serious: No
  Sender: FDA-Public Use
  Company Number: US-GLAXOSMITHKLINE-A0901420A

PATIENT
  Age: 59 Year
  Sex: Male

DRUGS (2)
  1. NO CONCURRENT MEDICATION [Concomitant]
  2. VOTRIENT [Suspect]
     Indication: RENAL CELL CARCINOMA
     Dosage: 800MG PER DAY
     Route: 048
     Dates: start: 20100817

REACTIONS (5)
  - HYPERTENSION [None]
  - NAUSEA [None]
  - VISUAL IMPAIRMENT [None]
  - DIARRHOEA [None]
  - HYPERGLYCAEMIA [None]
